FAERS Safety Report 8113284-3 (Version None)
Quarter: 2012Q1

REPORT INFORMATION
  Report Type: 
  Country: None (occurrence: None)
  Receive Date: 20120203
  Receipt Date: 20120130
  Transmission Date: 20120608
  Serious: Yes (Other)
  Sender: FDA-Public Use
  Company Number: US-PERRIGO-11US010918

PATIENT
  Sex: Female
  Weight: 49.887 kg

DRUGS (9)
  1. ASPIRIN [Concomitant]
     Indication: PRODUCT USED FOR UNKNOWN INDICATION
     Dosage: 81 MG, QD
     Route: 048
  2. ALBUTEROL [Concomitant]
     Indication: CHRONIC OBSTRUCTIVE PULMONARY DISEASE
     Dosage: UNK, AS NEEDED
     Route: 065
  3. METOPROLOL [Concomitant]
     Indication: BLOOD PRESSURE
     Dosage: 50 MG, BID
     Route: 065
  4. SYMBICORT [Concomitant]
     Indication: CHRONIC OBSTRUCTIVE PULMONARY DISEASE
     Dosage: 80MCG/84.5MCG 2 PUFFS BID
     Route: 065
  5. KLONOPIN [Concomitant]
     Indication: ANXIETY
     Dosage: 200MG, QHS
     Route: 065
  6. RID MOUSSE [Suspect]
     Indication: LICE INFESTATION
     Dosage: 3-4 OUNCES, ONCE
     Route: 061
     Dates: start: 20111210, end: 20111210
  7. DEPAKOTE [Concomitant]
     Indication: ANXIETY
     Dosage: 1000MG, QHS
     Route: 065
  8. SINGULAIR [Concomitant]
     Indication: CHRONIC OBSTRUCTIVE PULMONARY DISEASE
     Dosage: 10 MG, QD
     Route: 065
  9. TRAZODONE HCL [Concomitant]
     Indication: ANXIETY
     Dosage: UNK

REACTIONS (4)
  - ANGINA PECTORIS [None]
  - NAUSEA [None]
  - TRICHORRHEXIS [None]
  - ANGINA UNSTABLE [None]
